FAERS Safety Report 9599285 (Version 1)
Quarter: 2013Q4

REPORT INFORMATION
  Report Type: Spontaneous
  Country: US (occurrence: US)
  Receive Date: 20131004
  Receipt Date: 20131004
  Transmission Date: 20140711
  Serious: No
  Sender: FDA-Public Use
  Company Number: US-AMGEN-USASP2013028755

PATIENT
  Age: 56 Year
  Sex: Female
  Weight: 86.17 kg

DRUGS (5)
  1. ENBREL [Suspect]
     Indication: PRODUCT USED FOR UNKNOWN INDICATION
     Dosage: 50 MG, QWK
     Route: 058
  2. MUCINEX D [Concomitant]
     Dosage: 120-1200
  3. DIOVAN [Concomitant]
     Dosage: 40 MG, UNK
  4. FOLIC ACID [Concomitant]
     Dosage: 1 MG, UNK
  5. METHOTREXATE [Concomitant]
     Dosage: 2.5 MG, UNK

REACTIONS (3)
  - Therapeutic response decreased [Unknown]
  - Arthralgia [Unknown]
  - Injection site reaction [Unknown]
